FAERS Safety Report 25766275 (Version 1)
Quarter: 2025Q3

REPORT INFORMATION
  Report Type: Spontaneous
  Country: US (occurrence: US)
  Receive Date: 20250905
  Receipt Date: 20250905
  Transmission Date: 20251020
  Serious: No
  Sender: COSETTE PHARMACEUTICALS INC
  Company Number: US-COSETTE-CP2025US000830

PATIENT
  Age: 46 Year
  Sex: Female

DRUGS (5)
  1. VYLEESI [Suspect]
     Active Substance: BREMELANOTIDE ACETATE
     Indication: Libido decreased
     Route: 058
     Dates: start: 20250815, end: 20250822
  2. LIOTHYRONINE [Concomitant]
     Active Substance: LIOTHYRONINE
     Indication: Product used for unknown indication
     Route: 065
  3. NP THYROID [Concomitant]
     Active Substance: LEVOTHYROXINE\LIOTHYRONINE
     Indication: Product used for unknown indication
     Route: 065
  4. MINOXIDIL [Concomitant]
     Active Substance: MINOXIDIL
     Indication: Progesterone abnormal
     Route: 065
  5. TIRZEPATIDE [Concomitant]
     Active Substance: TIRZEPATIDE
     Indication: Weight decreased
     Route: 065

REACTIONS (2)
  - Flushing [Unknown]
  - Nausea [Unknown]

NARRATIVE: CASE EVENT DATE: 20250801
